FAERS Safety Report 5861451-1 (Version None)
Quarter: 2008Q3

REPORT INFORMATION
  Report Type: 
  Country: None (occurrence: None)
  Receive Date: 20080827
  Receipt Date: 20080516
  Transmission Date: 20090109
  Serious: No
  Sender: FDA-Public Use
  Company Number: US-ABBOTT-08P-163-0452146-00

PATIENT
  Sex: Female
  Weight: 58.112 kg

DRUGS (2)
  1. NIASPAN [Suspect]
     Indication: BLOOD CHOLESTEROL INCREASED
     Route: 048
     Dates: start: 20080301, end: 20080316
  2. ERGOCALCIFEROL [Concomitant]
     Indication: VITAMIN SUPPLEMENTATION
     Route: 048

REACTIONS (5)
  - FALL [None]
  - FEELING HOT [None]
  - GENERALISED ERYTHEMA [None]
  - HYPOTENSION [None]
  - SYNCOPE [None]
